FAERS Safety Report 8501937-4 (Version None)
Quarter: 2012Q3

REPORT INFORMATION
  Report Type: 
  Country: None (occurrence: None)
  Receive Date: 20120711
  Receipt Date: 20120618
  Transmission Date: 20120928
  Serious: Yes (Hospitalization, Other)
  Sender: FDA-Public Use
  Company Number: CA-JNJFOC-20120608693

PATIENT
  Sex: Female
  Weight: 92.2 kg

DRUGS (4)
  1. PANADEINE CO [Concomitant]
     Route: 065
  2. AZATHIOPRINE [Concomitant]
     Route: 048
  3. REMICADE [Suspect]
     Indication: COLITIS ULCERATIVE
     Route: 042
     Dates: start: 20120113
  4. REMICADE [Suspect]
     Dosage: 4TH INFUSION
     Route: 042
     Dates: start: 20120420

REACTIONS (4)
  - PAIN [None]
  - ABSCESS [None]
  - PYREXIA [None]
  - RASH ERYTHEMATOUS [None]
